FAERS Safety Report 19706710 (Version 1)
Quarter: 2021Q3

REPORT INFORMATION
  Report Type: Spontaneous
  Country: IN (occurrence: IN)
  Receive Date: 20210817
  Receipt Date: 20210817
  Transmission Date: 20211014
  Serious: Yes (Other)
  Sender: FDA-Public Use
  Company Number: NVSC2021IN178078

PATIENT
  Age: 53 Year
  Sex: Female

DRUGS (3)
  1. REVOLADE [Suspect]
     Active Substance: ELTROMBOPAG OLAMINE
     Indication: HAEMATURIA
     Dosage: 25 MG, QW
     Route: 065
     Dates: start: 20210629, end: 20210801
  2. REVOLADE [Suspect]
     Active Substance: ELTROMBOPAG OLAMINE
     Dosage: 25 MG, QD
     Route: 065
     Dates: start: 20210802
  3. REVOLADE [Suspect]
     Active Substance: ELTROMBOPAG OLAMINE
     Indication: IMMUNE THROMBOCYTOPENIA
     Dosage: 50 MG, QD
     Route: 065
     Dates: start: 20210611, end: 20210628

REACTIONS (6)
  - Pyrexia [Recovered/Resolved]
  - Platelet count decreased [Not Recovered/Not Resolved]
  - Chromaturia [Recovered/Resolved]
  - Blood glucose abnormal [Unknown]
  - Haemorrhoidal haemorrhage [Unknown]
  - Product use in unapproved indication [Unknown]

NARRATIVE: CASE EVENT DATE: 20210609
